FAERS Safety Report 8376831-2 (Version None)
Quarter: 2012Q2

REPORT INFORMATION
  Report Type: 
  Country: None (occurrence: None)
  Receive Date: 20120522
  Receipt Date: 20120517
  Transmission Date: 20120825
  Serious: Yes (Other)
  Sender: FDA-Public Use
  Company Number: US-FRI-1000030584

PATIENT
  Age: 56 Year
  Sex: Female
  Weight: 59 kg

DRUGS (5)
  1. VIIBRYD [Suspect]
     Dosage: 20 MG
     Route: 048
     Dates: start: 20120415, end: 20120416
  2. VIIBRYD [Suspect]
     Indication: DEPRESSION
     Dosage: 10 MG
     Route: 048
     Dates: start: 20120408, end: 20120414
  3. VIIBRYD [Suspect]
     Dosage: 10 MG
     Route: 048
     Dates: start: 20120417
  4. VICODIN [Concomitant]
  5. BYSTOLIC [Suspect]
     Indication: HYPERTENSION
     Dosage: 5 MG
     Route: 048
     Dates: start: 20120401

REACTIONS (8)
  - FATIGUE [None]
  - FLATULENCE [None]
  - APATHY [None]
  - WEIGHT INCREASED [None]
  - HEART RATE DECREASED [None]
  - BLOOD PRESSURE INCREASED [None]
  - DYSPEPSIA [None]
  - LIBIDO DECREASED [None]
